FAERS Safety Report 6108742-7 (Version None)
Quarter: 2009Q1

REPORT INFORMATION
  Report Type: 
  Country: None (occurrence: None)
  Receive Date: 20090310
  Receipt Date: 20090305
  Transmission Date: 20090719
  Serious: Yes (Other)
  Sender: FDA-Public Use
  Company Number: US-KINGPHARMUSA00001-K200900244

PATIENT
  Age: 51 Year
  Sex: Female
  Weight: 78.912 kg

DRUGS (17)
  1. FLECTOR [Suspect]
     Indication: BACK PAIN
     Dosage: 1 PATCH, SINGLE
     Route: 061
     Dates: start: 20090201, end: 20090201
  2. MS CONTIN [Concomitant]
     Dosage: UNK
  3. ZANAFLEX [Concomitant]
     Dosage: UNK
  4. PROTONIX                           /01263201/ [Concomitant]
     Dosage: UNK
  5. FLONASE [Concomitant]
     Dosage: UNK
  6. TEGRETOL [Concomitant]
     Dosage: UNK
  7. REGLAN [Concomitant]
     Dosage: UNK
  8. GLYCOLAX [Concomitant]
     Dosage: UNK
  9. LISINOPRIL [Concomitant]
     Dosage: UNK
  10. PLAVIX [Concomitant]
     Dosage: UNK
  11. LOPRESSOR [Concomitant]
     Dosage: UNK
  12. NITROGLYCERIN [Concomitant]
     Dosage: UNK
  13. ZYPREXA [Concomitant]
     Dosage: UNK
  14. LEXAPRO [Concomitant]
     Dosage: UNK
  15. ADVAIR HFA [Concomitant]
     Dosage: UNK
  16. ASPIRIN [Concomitant]
     Dosage: 81 MG, QD
  17. PROMETHAZINE [Concomitant]
     Dosage: UNK

REACTIONS (1)
  - ANGINA PECTORIS [None]
